FAERS Safety Report 10221033 (Version 3)
Quarter: 2014Q2

REPORT INFORMATION
  Report Type: Spontaneous
  Country: CA (occurrence: CA)
  Receive Date: 20140606
  Receipt Date: 20140618
  Transmission Date: 20141212
  Serious: Yes (Life-Threatening, Hospitalization)
  Sender: FDA-Public Use
  Company Number: CA-PFIZER INC-2008062560

PATIENT
  Age: 52 Year
  Sex: Male

DRUGS (13)
  1. MORPHINE SULFATE [Suspect]
     Dosage: 30 MG, DAILY
     Route: 048
  2. MORPHINE SULFATE [Interacting]
     Dosage: 100 MG, UNK
  3. MORPHINE SULFATE [Interacting]
     Dosage: 15 MG, UNK
  4. LORAZEPAM [Interacting]
     Dosage: 1 MG, UNK
     Route: 048
  5. ZOPICLONE [Interacting]
     Dosage: 15 MG, DAILY
     Route: 048
  6. ESCITALOPRAM [Interacting]
     Dosage: 10 MG, DAILY
     Route: 048
  7. DIAZEPAM [Interacting]
     Dosage: 10 MG, UNK
     Route: 048
  8. OXYCODONE [Interacting]
     Route: 048
  9. OXYCODONE [Interacting]
     Dosage: 20 MG, UNK
     Route: 048
  10. OXYCODONE EXTENDED RELEASE [Interacting]
     Dosage: 10 MG, UNK
     Route: 048
  11. CITALOPRAM [Interacting]
     Dosage: UNK MG, UNK
     Route: 048
  12. ACETAMINOPHEN/OXYCODONE [Interacting]
     Dosage: ACETAMINOPHEN 325MG, OXYCODONE 5MG
     Route: 048
  13. ALTACE [Concomitant]
     Route: 048

REACTIONS (12)
  - Overdose [Unknown]
  - Drug interaction [Unknown]
  - Electrocardiogram QT prolonged [Recovered/Resolved]
  - Sinus tachycardia [Unknown]
  - Loss of consciousness [Unknown]
  - Electrocardiogram abnormal [Unknown]
  - Hyperkalaemia [Recovered/Resolved]
  - Bradycardia [Unknown]
  - Nodal rhythm [None]
  - Blood pressure systolic decreased [None]
  - Blood calcium decreased [None]
  - International normalised ratio increased [None]
